FAERS Safety Report 5754986-3 (Version None)
Quarter: 2008Q2

REPORT INFORMATION
  Report Type: 
  Country: None (occurrence: None)
  Receive Date: 20080602
  Receipt Date: 20080522
  Transmission Date: 20081010
  Serious: Yes (Hospitalization, Other)
  Sender: FDA-Public Use
  Company Number: GB-ELI_LILLY_AND_COMPANY-GB200805004799

PATIENT
  Age: 43 Year
  Sex: Male

DRUGS (2)
  1. ZYPREXA [Suspect]
     Indication: SCHIZOPHRENIA
     Dosage: 7.5 MG, UNK
     Route: 048
     Dates: start: 20080314
  2. PIPORTIL DEPOT [Concomitant]
     Indication: SCHIZOPHRENIA
     Dosage: 50 MG, OTHER
     Route: 030
     Dates: start: 20050101, end: 20080303

REACTIONS (1)
  - HYPOTHERMIA [None]
